FAERS Safety Report 4924451-1 (Version None)
Quarter: 2006Q1

REPORT INFORMATION
  Report Type: 
  Country: None (occurrence: None)
  Receive Date: 20060227
  Receipt Date: 20050406
  Transmission Date: 20060701
  Serious: Yes (Hospitalization, Disabling)
  Sender: FDA-Public Use
  Company Number: US-ROCHE-401137

PATIENT
  Age: 15 Year
  Sex: Male
  Weight: 76.7 kg

DRUGS (1)
  1. ACCUTANE [Suspect]
     Route: 048
     Dates: start: 19910401, end: 19910731

REACTIONS (23)
  - APPENDIX DISORDER [None]
  - ARTHRALGIA [None]
  - CHAPPED LIPS [None]
  - CHRONIC FATIGUE SYNDROME [None]
  - CROHN'S DISEASE [None]
  - DECREASED APPETITE [None]
  - DIZZINESS [None]
  - FLATULENCE [None]
  - GASTROINTESTINAL DISORDER [None]
  - GASTROOESOPHAGEAL REFLUX DISEASE [None]
  - HYDRONEPHROSIS [None]
  - INFLAMMATORY BOWEL DISEASE [None]
  - INTESTINAL HAEMORRHAGE [None]
  - LETHARGY [None]
  - MALAISE [None]
  - MULTI-ORGAN DISORDER [None]
  - MYALGIA [None]
  - NAUSEA [None]
  - NIGHT SWEATS [None]
  - OESOPHAGITIS [None]
  - PYREXIA [None]
  - RECTAL HAEMORRHAGE [None]
  - TENSION HEADACHE [None]
